FAERS Safety Report 9497075 (Version 2)
Quarter: 2013Q4

REPORT INFORMATION
  Report Type: Spontaneous
  Country: CA (occurrence: US)
  Receive Date: 20130904
  Receipt Date: 20131226
  Transmission Date: 20140711
  Serious: Yes (Hospitalization, Other)
  Sender: FDA-Public Use
  Company Number: CA-BAYER-2013-105656

PATIENT
  Age: 33 Year
  Sex: Female
  Weight: 59.86 kg

DRUGS (3)
  1. MIRENA [Suspect]
     Indication: CONTRACEPTION
     Dosage: 20 MCG/24HR, CONT
     Route: 015
     Dates: start: 20081110, end: 20120427
  2. LEVEMIR [Concomitant]
  3. NOVOLOG [Concomitant]

REACTIONS (12)
  - Uterine perforation [None]
  - Pregnancy with contraceptive device [None]
  - Drug ineffective [None]
  - Infection [None]
  - Medical device pain [None]
  - Injury [None]
  - Device dislocation [None]
  - Peritoneal adhesions [None]
  - Scar [None]
  - Pelvic pain [None]
  - Device difficult to use [None]
  - Device issue [None]
